FAERS Safety Report 24696740 (Version 1)
Quarter: 2024Q4

REPORT INFORMATION
  Report Type: Spontaneous
  Country: JP (occurrence: JP)
  Receive Date: 20241204
  Receipt Date: 20241204
  Transmission Date: 20250115
  Serious: Yes (Death)
  Sender: RECORDATI
  Company Number: JP-ORPHANEU-2024009411

PATIENT

DRUGS (2)
  1. ISTURISA [Suspect]
     Active Substance: OSILODROSTAT PHOSPHATE
     Indication: Ectopic ACTH syndrome
     Dosage: MAXIMUM 6 MG/DAY (FOLLOWED BY GRADUAL TAPERING, AS APPROPRIATE)
  2. ISTURISA [Suspect]
     Active Substance: OSILODROSTAT PHOSPHATE
     Dosage: RESTARTED IN DECEMBER

REACTIONS (1)
  - Small cell lung cancer [Fatal]
